FAERS Safety Report 6457405-7 (Version None)
Quarter: 2009Q4

REPORT INFORMATION
  Report Type: 
  Country: None (occurrence: None)
  Receive Date: 20091125
  Receipt Date: 20091123
  Transmission Date: 20100525
  Serious: Yes (Hospitalization)
  Sender: FDA-Public Use
  Company Number: US-B.I. PHARMACEUTICALS,INC./RIDGEFIELD-2009-BP-13634BP

PATIENT
  Sex: Female

DRUGS (9)
  1. SPIRIVA [Suspect]
     Indication: CHRONIC OBSTRUCTIVE PULMONARY DISEASE
     Dosage: 18 MCG
     Route: 055
     Dates: start: 20040101
  2. PRO-AIR [Concomitant]
     Indication: CHRONIC OBSTRUCTIVE PULMONARY DISEASE
  3. CYMBALTA [Concomitant]
     Indication: DEPRESSION
  4. KLONOPIN [Concomitant]
     Indication: DEPRESSION
  5. OXYCONTIN [Concomitant]
     Indication: NEURALGIA
  6. METHADONE HCL [Concomitant]
     Indication: NEURALGIA
  7. CENTRUM [Concomitant]
     Indication: PROPHYLAXIS
  8. FLONASE [Concomitant]
     Indication: HYPERSENSITIVITY
  9. VITAMIN B-12 [Concomitant]
     Indication: PROPHYLAXIS

REACTIONS (2)
  - HERPES VIRUS INFECTION [None]
  - OSTEOMYELITIS [None]
